FAERS Safety Report 8248805 (Version 3)
Quarter: 2013Q1

REPORT INFORMATION
  Report Type: Spontaneous
  Country: CA (occurrence: None)
  Receive Date: 20111104
  Receipt Date: 20130225
  Transmission Date: 20140127
  Serious: Yes (Other)
  Sender: FDA-Public Use
  Company Number: 2011030209

PATIENT
  Sex: Male

DRUGS (1)
  1. BERINERT [Suspect]

REACTIONS (2)
  - Hereditary angioedema [None]
  - Maternal drugs affecting foetus [None]
